FAERS Safety Report 14940067 (Version 1)
Quarter: 2018Q2

REPORT INFORMATION
  Report Type: Report from Study
  Country: CN (occurrence: CN)
  Receive Date: 20180525
  Receipt Date: 20180525
  Transmission Date: 20180711
  Serious: Yes (Hospitalization)
  Sender: FDA-Public Use
  Company Number: CN-ANIPHARMA-2018-CN-000073

PATIENT
  Age: 68 Year
  Sex: Female
  Weight: 62 kg

DRUGS (2)
  1. ANASTROZOLE. [Suspect]
     Active Substance: ANASTROZOLE
     Dosage: 1MG DAILY
     Route: 048
     Dates: start: 20170713, end: 20171109
  2. MONTMORILLONITE [Concomitant]
     Active Substance: MONTMORILLONITE
     Route: 065
     Dates: start: 20170810

REACTIONS (4)
  - Fatigue [Recovering/Resolving]
  - Pneumonitis [Recovering/Resolving]
  - Decreased appetite [Recovering/Resolving]
  - Cough [Recovering/Resolving]

NARRATIVE: CASE EVENT DATE: 20171109
